FAERS Safety Report 18908699 (Version 1)
Quarter: 2021Q1

REPORT INFORMATION
  Report Type: Spontaneous
  Country: US (occurrence: US)
  Receive Date: 20210218
  Receipt Date: 20210218
  Transmission Date: 20210420
  Serious: Yes (Other)
  Sender: FDA-Public Use
  Company Number: US-ELI_LILLY_AND_COMPANY-US202102004660

PATIENT
  Sex: Male

DRUGS (2)
  1. PREDNISONE. [Concomitant]
     Active Substance: PREDNISONE
     Indication: PRODUCT USED FOR UNKNOWN INDICATION
  2. FORTEO [Suspect]
     Active Substance: TERIPARATIDE
     Indication: PRODUCT USED FOR UNKNOWN INDICATION
     Dosage: UNK UNK, UNKNOWN
     Route: 065
     Dates: start: 20210111

REACTIONS (18)
  - Discomfort [Unknown]
  - Constipation [Unknown]
  - Prostate cancer [Unknown]
  - Back injury [Unknown]
  - Fatigue [Unknown]
  - Back pain [Unknown]
  - Nausea [Unknown]
  - Taste disorder [Unknown]
  - Spinal compression fracture [Unknown]
  - Nerve compression [Unknown]
  - Malaise [Not Recovered/Not Resolved]
  - Injury [Unknown]
  - Decreased appetite [Unknown]
  - Confusional state [Unknown]
  - Mobility decreased [Unknown]
  - Hypoacusis [Unknown]
  - Listless [Unknown]
  - Neuralgia [Unknown]
